FAERS Safety Report 7445647-3 (Version None)
Quarter: 2011Q2

REPORT INFORMATION
  Report Type: 
  Country: None (occurrence: None)
  Receive Date: 20110429
  Receipt Date: 20110427
  Transmission Date: 20111010
  Serious: Yes (Life-Threatening, Hospitalization)
  Sender: FDA-Public Use
  Company Number: ES-ROCHE-773853

PATIENT
  Age: 56 Year
  Sex: Male

DRUGS (5)
  1. QUETIAPINE [Suspect]
     Indication: PSYCHOTIC DISORDER
     Route: 048
     Dates: start: 20110324, end: 20110402
  2. GABAPENTIN [Concomitant]
     Indication: PSYCHOTIC DISORDER
     Route: 048
     Dates: end: 20110402
  3. LITHIUM CARBONATE [Concomitant]
     Indication: PSYCHOTIC DISORDER
     Route: 048
     Dates: start: 20110317, end: 20110402
  4. RIVOTRIL [Suspect]
     Indication: PSYCHOTIC DISORDER
     Route: 048
     Dates: end: 20110402
  5. ABILIFY [Suspect]
     Indication: PSYCHOTIC DISORDER
     Route: 048
     Dates: start: 20110310, end: 20110402

REACTIONS (1)
  - NEUROLEPTIC MALIGNANT SYNDROME [None]
